FAERS Safety Report 8762080 (Version 1)
Quarter: 2012Q4

REPORT INFORMATION
  Report Type: 
  Country: US (occurrence: US)
  Receive Date: 20120830
  Receipt Date: 20120830
  Transmission Date: 20130627
  Serious: No
  Sender: FDA-Public Use
  Company Number: US-009507513-1208USA008539

PATIENT

DRUGS (8)
  1. MIRALAX [Suspect]
     Indication: GASTROINTESTINAL DISORDER
     Dosage: 17 g, bid
     Route: 048
     Dates: start: 2002
  2. MIRALAX [Suspect]
     Indication: MEDICAL OBSERVATION
  3. METHENAMINE HIPPURATE [Concomitant]
     Indication: BLADDER CANCER
     Dosage: UNK, Unknown
  4. LEVOTHYROXINE SODIUM [Concomitant]
     Indication: THYROID DISORDER
     Dosage: UNK, Unknown
  5. ZETIA [Concomitant]
     Indication: CARDIAC DISORDER
     Dosage: UNK, Unknown
  6. RAMIPRIL [Concomitant]
     Indication: CARDIAC DISORDER
     Dosage: UNK, Unknown
  7. BAYER ASPIRIN [Concomitant]
     Indication: CARDIAC DISORDER
     Dosage: UNK, Unknown
  8. ASCORBIC ACID [Concomitant]
     Indication: BLADDER CANCER
     Dosage: UNK, Unknown

REACTIONS (3)
  - Therapeutic response unexpected [Unknown]
  - Overdose [Unknown]
  - Incorrect drug administration duration [Unknown]
